FAERS Safety Report 9214938 (Version 1)
Quarter: 2013Q2

REPORT INFORMATION
  Report Type: Report from Study
  Country: CA (occurrence: CA)
  Receive Date: 20130405
  Receipt Date: 20130405
  Transmission Date: 20140414
  Serious: Yes (Hospitalization)
  Sender: FDA-Public Use
  Company Number: CA-AMGEN-US308341

PATIENT
  Age: 85 Year
  Sex: Male

DRUGS (8)
  1. DENOSUMAB [Suspect]
     Indication: PROSTATE CANCER
     Dosage: UNK UNK, QMO
     Route: 058
     Dates: start: 20080603
  2. ESTRADIOL [Suspect]
     Dosage: 1 MG, QD
     Route: 048
     Dates: start: 20010820, end: 20080914
  3. CELECOXIB [Suspect]
     Dosage: 200 MG, QD
     Route: 048
     Dates: start: 20021005, end: 20080917
  4. ACETYLSALICYLIC ACID [Concomitant]
     Dosage: 80 MG, QD
     Route: 048
     Dates: start: 20080215
  5. IBUPROFEN [Concomitant]
     Dosage: 200 MG, PRN
     Route: 048
     Dates: start: 1999
  6. GLUCOSAMINE [Concomitant]
     Dosage: 500 MG, QD
     Route: 048
     Dates: start: 1999
  7. CALCIUM [Concomitant]
     Dosage: 500 MG, QD
     Route: 048
     Dates: start: 20080604
  8. ERGOCALCIFEROL [Concomitant]
     Dosage: 400 IU, QD
     Route: 048
     Dates: start: 20080604

REACTIONS (1)
  - Pulmonary embolism [Recovered/Resolved]
